FAERS Safety Report 24190995 (Version 1)
Quarter: 2024Q3

REPORT INFORMATION
  Report Type: Spontaneous
  Country: DK (occurrence: DK)
  Receive Date: 20240808
  Receipt Date: 20240808
  Transmission Date: 20241017
  Serious: Yes (Hospitalization)
  Sender: FERRING
  Company Number: DK-FERRINGPH-2024FE04199

PATIENT

DRUGS (4)
  1. MENOPUR [Suspect]
     Active Substance: FOLLITROPIN\LUTEINIZING HORMONE
     Indication: Assisted reproductive technology
     Dosage: 112.5 INTERNATIONAL UNIT, 1 TIME DAILY
     Route: 065
     Dates: start: 20240614, end: 20240621
  2. GANIRELIX [Concomitant]
     Active Substance: GANIRELIX
     Indication: Assisted reproductive technology
     Dosage: 0.25 MG, 1 TIME DAILY
     Dates: start: 20240619, end: 20240622
  3. CHORIOGONADOTROPIN ALFA [Concomitant]
     Active Substance: CHORIOGONADOTROPIN ALFA
     Indication: Assisted reproductive technology
     Dosage: 250 UG, ONCE/SINGLE, 22.00 O?CLOCK
     Dates: start: 20240622, end: 20240622
  4. PROGESTERONE [Concomitant]
     Active Substance: PROGESTERONE
     Indication: Assisted reproductive technology
     Dosage: 400 MG, 2 TIMES DAILY
     Dates: start: 20240627, end: 20240711

REACTIONS (2)
  - Tachycardia [Recovering/Resolving]
  - Ovarian hyperstimulation syndrome [Recovering/Resolving]

NARRATIVE: CASE EVENT DATE: 20240702
